FAERS Safety Report 16110490 (Version 1)
Quarter: 2019Q1

REPORT INFORMATION
  Report Type: Spontaneous
  Country: ES (occurrence: ES)
  Receive Date: 20190325
  Receipt Date: 20190325
  Transmission Date: 20190418
  Serious: Yes (Other)
  Sender: FDA-Public Use
  Company Number: ES-TEVA-2019-ES-1028258

PATIENT
  Age: 76 Year
  Sex: Female

DRUGS (4)
  1. TORASEMIDA (2351A) [Suspect]
     Active Substance: TORSEMIDE
     Indication: HYPERTENSION
     Dosage: 5 MILLIGRAM DAILY; 1/24
     Route: 048
     Dates: start: 20180520
  2. CANDESARTAN (2794A) [Suspect]
     Active Substance: CANDESARTAN
     Indication: HYPERTENSION
     Dosage: 32 MILLIGRAM DAILY; 1/24
     Route: 048
     Dates: start: 20180520
  3. SIMVASTATINA [Suspect]
     Active Substance: SIMVASTATIN
     Indication: HYPERLIPIDAEMIA
     Dosage: 20 MILLIGRAM DAILY; 1/24 H.
     Route: 048
     Dates: start: 20180520
  4. NITROFURANTOINA LIADE COMPRIMIDOS, 20 [Suspect]
     Active Substance: NITROFURANTOIN
     Indication: CYSTITIS
     Dosage: 50 MILLIGRAM DAILY; 1/24 H
     Route: 048
     Dates: start: 20180516, end: 20181010

REACTIONS (2)
  - Oral discomfort [Unknown]
  - Pyrexia [Recovered/Resolved]

NARRATIVE: CASE EVENT DATE: 20180610
